FAERS Safety Report 15629715 (Version 1)
Quarter: 2018Q4

REPORT INFORMATION
  Report Type: Spontaneous
  Country: US (occurrence: US)
  Receive Date: 20181117
  Receipt Date: 20181117
  Transmission Date: 20190205
  Serious: Yes (Other)
  Sender: FDA-Public Use
  Company Number: US-JNJFOC-20181106883

PATIENT

DRUGS (5)
  1. VENETOCLAX. [Suspect]
     Active Substance: VENETOCLAX
     Indication: PRODUCT USED FOR UNKNOWN INDICATION
     Dosage: 200-800 MG (UPTO SIX CYCLES)-(ONE IN THREE D)
     Route: 048
  2. IMBRUVICA [Suspect]
     Active Substance: IBRUTINIB
     Indication: DIFFUSE LARGE B-CELL LYMPHOMA
     Dosage: 560 MG, QD FOR DAYS 1-14, FOR 21 DAYS
     Route: 048
  3. OBINUTUZUMAB. [Suspect]
     Active Substance: OBINUTUZUMAB
     Indication: PRODUCT USED FOR UNKNOWN INDICATION
     Dosage: 1000 MG,ON DAYS 1-2 EVERY 21DAYS
     Route: 042
  4. PREDNISONE. [Suspect]
     Active Substance: PREDNISONE
     Indication: DIFFUSE LARGE B-CELL LYMPHOMA
     Dosage: UPTO EVERY SIX CYCLES 100 MG ON DAYS 1-2 EVERY 21DAYS
     Route: 048
  5. REVLIMID [Suspect]
     Active Substance: LENALIDOMIDE
     Indication: DIFFUSE LARGE B-CELL LYMPHOMA
     Dosage: EVERY SIX CYCLES, 15 MG ON DAYS 1-15, EVERY 21DAYS
     Route: 048

REACTIONS (3)
  - Product use in unapproved indication [Unknown]
  - Atrial fibrillation [Recovered/Resolved]
  - Off label use [Unknown]
